FAERS Safety Report 25658417 (Version 1)
Quarter: 2025Q3

REPORT INFORMATION
  Report Type: Spontaneous
  Country: CN (occurrence: CN)
  Receive Date: 20250808
  Receipt Date: 20250808
  Transmission Date: 20251020
  Serious: Yes (Other)
  Sender: ALEXION PHARMACEUTICALS
  Company Number: CN-ASTRAZENECA-202508GLO000936CN

PATIENT
  Age: 62 Year
  Sex: Male

DRUGS (4)
  1. OSIMERTINIB [Suspect]
     Active Substance: OSIMERTINIB
     Indication: Lung adenocarcinoma
     Dosage: 160 MILLIGRAM, QD
  2. OSIMERTINIB [Suspect]
     Active Substance: OSIMERTINIB
     Indication: EGFR gene mutation
  3. CABOZANTINIB [Suspect]
     Active Substance: CABOZANTINIB
     Indication: EGFR gene mutation
     Dosage: 50 MILLIGRAM, QD
     Route: 065
  4. CABOZANTINIB [Suspect]
     Active Substance: CABOZANTINIB
     Indication: Lung adenocarcinoma

REACTIONS (2)
  - Metastases to meninges [Unknown]
  - Drug resistance [Unknown]
